FAERS Safety Report 25726144 (Version 1)
Quarter: 2025Q3

REPORT INFORMATION
  Report Type: Report from Study
  Country: EU (occurrence: EU)
  Receive Date: 20250826
  Receipt Date: 20250826
  Transmission Date: 20251021
  Serious: No
  Sender: PHARMAESSENTIA
  Company Number: EU-AOP-2025001452

PATIENT

DRUGS (1)
  1. BESREMI [Suspect]
     Active Substance: ROPEGINTERFERON ALFA-2B-NJFT
     Indication: Essential thrombocythaemia
     Route: 058

REACTIONS (3)
  - Product use complaint [Unknown]
  - Device malfunction [Unknown]
  - Product dose omission issue [Unknown]
